FAERS Safety Report 9896829 (Version 4)
Quarter: 2014Q3

REPORT INFORMATION
  Report Type: Report from Study
  Country: GB (occurrence: GB)
  Receive Date: 20140213
  Receipt Date: 20140709
  Transmission Date: 20150326
  Serious: Yes (Hospitalization)
  Sender: FDA-Public Use
  Company Number: GB-US-EMD SERONO, INC.-7266778

PATIENT
  Age: 41 Year
  Sex: Female

DRUGS (1)
  1. REBIF [Suspect]
     Active Substance: INTERFERON BETA-1A
     Indication: MULTIPLE SCLEROSIS
     Route: 058
     Dates: start: 20140128

REACTIONS (6)
  - Vomiting [Unknown]
  - Migraine [Unknown]
  - Pain [Recovering/Resolving]
  - Chills [Recovering/Resolving]
  - Skin sensitisation [Recovering/Resolving]
  - Meningitis viral [Unknown]

NARRATIVE: CASE EVENT DATE: 20140128
